FAERS Safety Report 9227201 (Version 1)
Quarter: 2013Q1

REPORT INFORMATION
  Report Type: Spontaneous
  Country: US (occurrence: None)
  Receive Date: 20121012
  Receipt Date: 20121012
  Transmission Date: 20140127
  Serious: Yes (Other)
  Sender: FDA-Public Use
  Company Number: 1000029610

PATIENT
  Age: 37 Year
  Sex: Male
  Weight: 75.3 kg

DRUGS (4)
  1. ESCITALOPRAM [Suspect]
     Indication: ANXIETY
     Route: 048
     Dates: start: 20120320, end: 20120404
  2. LEVOTHYROXINE (LEVOTHYROXINE SODIUM) (LEVOTHYROXINE SODIUM) [Concomitant]
  3. OMEPRAZOLE (OMEPRAZOLE) (OMEPRAZOLE) [Concomitant]
  4. FISH OIL (FISH OIL) (FISH OIL) [Concomitant]

REACTIONS (9)
  - Suicidal ideation [None]
  - Blood pressure increased [None]
  - Anxiety [None]
  - Restlessness [None]
  - Nervousness [None]
  - Dyskinesia [None]
  - Chest discomfort [None]
  - Withdrawal syndrome [None]
  - Skin burning sensation [None]
